FAERS Safety Report 23333821 (Version 1)
Quarter: 2023Q4

REPORT INFORMATION
  Report Type: Spontaneous
  Country: US (occurrence: US)
  Receive Date: 20231223
  Receipt Date: 20231223
  Transmission Date: 20240110
  Serious: No
  Sender: FDA-Public Use
  Company Number: US-GLAXOSMITHKLINE-US2023AMR176821

PATIENT

DRUGS (4)
  1. ZEJULA [Suspect]
     Active Substance: NIRAPARIB
     Indication: Genital neoplasm malignant female
     Dosage: UNK
  2. ZEJULA [Suspect]
     Active Substance: NIRAPARIB
     Indication: Chemotherapy
  3. ZEJULA [Suspect]
     Active Substance: NIRAPARIB
     Indication: Nausea
  4. ZEJULA [Suspect]
     Active Substance: NIRAPARIB
     Indication: Vomiting

REACTIONS (1)
  - Off label use [Unknown]
